FAERS Safety Report 6168012-8 (Version None)
Quarter: 2009Q2

REPORT INFORMATION
  Report Type: 
  Country: None (occurrence: None)
  Receive Date: 20090423
  Receipt Date: 20050811
  Transmission Date: 20091009
  Serious: Yes (Death, Life-Threatening)
  Sender: FDA-Public Use
  Company Number: 006#3#2005-00035

PATIENT
  Age: 65 Year
  Sex: Female

DRUGS (9)
  1. VOGALENE (VOGALENE-DOSE-UNKNOW) (NOT SPECIFIED) [Suspect]
     Indication: NAUSEA
     Dosage: (ORAL)
     Route: 048
     Dates: start: 20050315, end: 20050323
  2. IBUPROFEN [Suspect]
     Indication: INFLUENZA
     Dosage: (ORAL)
     Route: 048
     Dates: start: 20050221, end: 20050225
  3. SPASFON /00765801/ (SPASFON 80 MG FREEZE DRIED TAB) [Suspect]
     Indication: ABDOMINAL PAIN
     Dosage: (ORAL)
     Route: 048
     Dates: start: 20050225, end: 20050301
  4. OMEPRAZOLE [Suspect]
     Dosage: (ORAL)
     Route: 048
     Dates: start: 20050131, end: 20050326
  5. ACETAMINOPHEN [Suspect]
     Dosage: (ORAL)
     Route: 048
  6. POLERY /00853301/ [Concomitant]
  7. EXOMUC () [Concomitant]
  8. HEXALYSE /01270001/ [Concomitant]
  9. BIFERDYS [Suspect]
     Route: 048
     Dates: start: 20050225, end: 20050301

REACTIONS (2)
  - CARDIAC ARREST [None]
  - TOXIC EPIDERMAL NECROLYSIS [None]
